FAERS Safety Report 6904981-3 (Version None)
Quarter: 2010Q3

REPORT INFORMATION
  Report Type: 
  Country: None (occurrence: None)
  Receive Date: 20100804
  Receipt Date: 20090819
  Transmission Date: 20110219
  Serious: Yes (Hospitalization, Other)
  Sender: FDA-Public Use
  Company Number: US-PFIZER INC-2009234651

PATIENT
  Sex: Female
  Weight: 93.424 kg

DRUGS (13)
  1. LYRICA [Suspect]
     Indication: PAIN
     Dosage: 50 MG, 3X/DAY
     Dates: start: 20090512, end: 20090520
  2. ULTRAM [Concomitant]
  3. FLUOXETINE HYDROCHLORIDE [Concomitant]
  4. DILTIAZEM HYDROCHLORIDE [Concomitant]
  5. KLOR-CON [Concomitant]
  6. AVAPRO [Concomitant]
  7. HYDRALAZINE HCL [Concomitant]
  8. ALPRAZOLAM [Concomitant]
  9. HYDROCHLOROTHIAZIDE [Concomitant]
  10. SYNTHROID [Concomitant]
  11. MULTI-VITAMIN [Concomitant]
  12. TYLENOL [Concomitant]
  13. ASPIRIN [Concomitant]

REACTIONS (4)
  - HYPOAESTHESIA [None]
  - SWELLING [None]
  - VISION BLURRED [None]
  - VISUAL IMPAIRMENT [None]
